FAERS Safety Report 11500189 (Version 4)
Quarter: 2015Q4

REPORT INFORMATION
  Report Type: Spontaneous
  Country: JP (occurrence: JP)
  Receive Date: 20150914
  Receipt Date: 20151020
  Transmission Date: 20160304
  Serious: Yes (Death, Hospitalization, Other)
  Sender: FDA-Public Use
  Company Number: JP-009507513-1509JPN006182

PATIENT
  Age: 73 Year
  Sex: Male

DRUGS (13)
  1. DIART [Concomitant]
     Active Substance: AZOSEMIDE
     Dosage: 60 MG, QAM,IN THE MORNING
     Route: 048
  2. LIVALO [Concomitant]
     Active Substance: PITAVASTATIN CALCIUM
     Dosage: 2 MG, QAM, IN THE MORNING
     Route: 048
  3. WARFARIN [Concomitant]
     Active Substance: WARFARIN
     Dosage: 2.5 MG, IN THE MORING
     Route: 048
  4. BROTIZOLAM [Concomitant]
     Active Substance: BROTIZOLAM
     Dosage: 0.5 MG, BEFORE SLEEP
     Route: 048
  5. PARIET [Concomitant]
     Active Substance: RABEPRAZOLE SODIUM
     Dosage: 20 MG, QAM, IN THE MORNING
     Route: 048
  6. AMBROXOL HYDROCHLORIDE [Concomitant]
     Active Substance: AMBROXOL HYDROCHLORIDE
     Dosage: 45 MG, QPM
     Route: 048
  7. JANUVIA [Suspect]
     Active Substance: SITAGLIPTIN PHOSPHATE
     Indication: TYPE 2 DIABETES MELLITUS
     Dosage: 25 MG, QAM, IN THE MORNING
     Route: 048
     Dates: start: 20150122, end: 20150603
  8. JANUVIA [Suspect]
     Active Substance: SITAGLIPTIN PHOSPHATE
     Dosage: 25 MG, QAM, IN THE MORNING
     Route: 048
     Dates: start: 20150617, end: 20150701
  9. FUROSEMIDE. [Concomitant]
     Active Substance: FUROSEMIDE
     Dosage: 40 MG, BID (IN THE MORNING AND THE AFTEMOON)
     Route: 048
  10. AMARYL [Concomitant]
     Active Substance: GLIMEPIRIDE
     Dosage: 0.5 MG, QAM, IN THE MORNING
     Route: 048
  11. ALLOPURINOL. [Concomitant]
     Active Substance: ALLOPURINOL
     Dosage: 100 MG, QD, IN THE MORNING
     Route: 048
  12. BUFFERIN [Concomitant]
     Active Substance: ASPIRIN
     Dosage: 81 MG, QAM, IN THE MORNING
     Route: 048
  13. NU-LOTAN [Concomitant]
     Active Substance: LOSARTAN POTASSIUM
     Dosage: 50 MG, QAM, IN THE MORNING
     Route: 048

REACTIONS (3)
  - Upper gastrointestinal haemorrhage [Unknown]
  - Cardiac failure chronic [Fatal]
  - Renal failure [Fatal]

NARRATIVE: CASE EVENT DATE: 20150514
